FAERS Safety Report 5056052-1 (Version None)
Quarter: 2006Q2

REPORT INFORMATION
  Report Type: 
  Country: None (occurrence: None)
  Receive Date: 20060616
  Receipt Date: 20060222
  Transmission Date: 20061013
  Serious: No
  Sender: FDA-Public Use
  Company Number: 2006US000138

PATIENT
  Sex: Female

DRUGS (1)
  1. VESICARE (SOLIFENACIN) TABLETS 5MG [Suspect]
     Dosage: ORAL
     Route: 048

REACTIONS (2)
  - ASTHENOPIA [None]
  - VISION BLURRED [None]
